FAERS Safety Report 11152395 (Version 1)
Quarter: 2015Q2

REPORT INFORMATION
  Report Type: Spontaneous
  Country: US (occurrence: None)
  Receive Date: 20150529
  Receipt Date: 20150529
  Transmission Date: 20150821
  Serious: No
  Sender: FDA-Public Use
  Company Number: None

PATIENT
  Age: 52 Year
  Sex: Female

DRUGS (1)
  1. CYCLOPHOSPHAMIDE. [Suspect]
     Active Substance: CYCLOPHOSPHAMIDE
     Indication: IMMUNE SYSTEM DISORDER
     Route: 048
     Dates: start: 20150223, end: 20150526

REACTIONS (2)
  - Renal disorder [None]
  - Alopecia [None]

NARRATIVE: CASE EVENT DATE: 20150526
